FAERS Safety Report 9237440 (Version 1)
Quarter: 2013Q2

REPORT INFORMATION
  Report Type: Spontaneous
  Country: US (occurrence: US)
  Receive Date: 20130417
  Receipt Date: 20130417
  Transmission Date: 20140414
  Serious: No
  Sender: FDA-Public Use
  Company Number: US-PFIZER INC-2013117495

PATIENT
  Age: 42 Year
  Sex: Female
  Weight: 69.84 kg

DRUGS (1)
  1. MISOPROSTOL [Suspect]
     Indication: CERVIX DISORDER
     Dosage: UNK, SINGLE
     Dates: start: 20130409, end: 20130409

REACTIONS (1)
  - Dizziness [Recovered/Resolved]
